FAERS Safety Report 19021116 (Version 1)
Quarter: 2021Q1

REPORT INFORMATION
  Report Type: Spontaneous
  Country: CA (occurrence: CA)
  Receive Date: 20210317
  Receipt Date: 20210317
  Transmission Date: 20210420
  Serious: Yes (Other)
  Sender: FDA-Public Use
  Company Number: CA-TAKEDA-2019TUS052606

PATIENT
  Age: 37 Year
  Sex: Female

DRUGS (10)
  1. VALACYCLOVIR [Concomitant]
     Active Substance: VALACYCLOVIR HYDROCHLORIDE
     Indication: ANTIVIRAL PROPHYLAXIS
     Dosage: UNK
     Route: 065
  2. DEXAMETHASONE. [Suspect]
     Active Substance: DEXAMETHASONE
     Indication: AUTOIMMUNE RETINOPATHY
     Dosage: 8 MILLIGRAM
     Route: 048
  3. FOLINIC ACID [Suspect]
     Active Substance: LEUCOVORIN
     Indication: AUTOIMMUNE RETINOPATHY
     Dosage: 5 MILLIGRAM, QD
     Route: 065
  4. VELCADE [Suspect]
     Active Substance: BORTEZOMIB
     Indication: AUTOIMMUNE RETINOPATHY
     Dosage: 1.5 MILLIGRAM/SQ. METER
     Route: 058
     Dates: start: 201701
  5. ONDANSETRON [Concomitant]
     Active Substance: ONDANSETRON
     Indication: ANTIEMETIC SUPPORTIVE CARE
     Dosage: UNK
     Route: 065
  6. TRIAMCINOLONE ACETONIDE (GLUCOCORTICOID) [Suspect]
     Active Substance: TRIAMCINOLONE ACETONIDE
     Indication: AUTOIMMUNE RETINOPATHY
     Dosage: 40 MILLIGRAM
     Route: 065
  7. AZATHIOPRINE. [Suspect]
     Active Substance: AZATHIOPRINE
     Indication: AUTOIMMUNE RETINOPATHY
     Dosage: 150 MILLIGRAM, QD
     Route: 048
  8. RITUXIMAB. [Suspect]
     Active Substance: RITUXIMAB
     Indication: AUTOIMMUNE RETINOPATHY
     Dosage: 1000 MILLIGRAM
     Route: 042
  9. METHOTREXATE. [Suspect]
     Active Substance: METHOTREXATE
     Indication: AUTOIMMUNE RETINOPATHY
     Dosage: 25 MILLIGRAM, 1/WEEK
     Route: 058
  10. RITUXIMAB. [Suspect]
     Active Substance: RITUXIMAB
     Dosage: 1 GRAM
     Route: 042

REACTIONS (9)
  - Fatigue [Unknown]
  - Constipation [Unknown]
  - Neuropathy peripheral [Unknown]
  - Therapy non-responder [Unknown]
  - Off label use [Unknown]
  - Injection site inflammation [Unknown]
  - Product use in unapproved indication [Unknown]
  - Epigastric discomfort [Unknown]
  - Drug-induced liver injury [Unknown]
